FAERS Safety Report 18706205 (Version 1)
Quarter: 2021Q1

REPORT INFORMATION
  Report Type: Spontaneous
  Country: US (occurrence: US)
  Receive Date: 20210106
  Receipt Date: 20210106
  Transmission Date: 20210419
  Serious: No
  Sender: FDA-Public Use
  Company Number: US-LUPIN PHARMACEUTICALS INC.-2020-07002

PATIENT
  Age: 18 Year
  Sex: Female

DRUGS (8)
  1. VORICONAZOLE. [Suspect]
     Active Substance: VORICONAZOLE
     Indication: MICROSPORIDIA INFECTION
  2. ERYTHROMYCIN. [Concomitant]
     Active Substance: ERYTHROMYCIN
     Indication: KERATITIS
     Dosage: UNK
     Route: 048
  3. AZITHROMYCIN ANHYDROUS. [Suspect]
     Active Substance: AZITHROMYCIN ANHYDROUS
     Indication: KERATITIS
     Dosage: UNK UNK, BID (2 TIMES DAILY FOR 2 DAYS)
     Route: 061
  4. VORICONAZOLE. [Suspect]
     Active Substance: VORICONAZOLE
     Indication: KERATITIS
     Dosage: UNK (6 TIMES DAILY WITHOUT TAPER)
     Route: 061
  5. LOTEPREDNOL [Concomitant]
     Active Substance: LOTEPREDNOL
     Indication: KERATITIS
     Dosage: UNK, QD
     Route: 016
  6. DOXYCYCLINE. [Suspect]
     Active Substance: DOXYCYCLINE
     Indication: KERATITIS
     Dosage: UNK
     Route: 048
  7. AZITHROMYCIN ANHYDROUS. [Suspect]
     Active Substance: AZITHROMYCIN ANHYDROUS
     Dosage: UNK UNK, QD
     Route: 061
  8. OFLOXACIN. [Concomitant]
     Active Substance: OFLOXACIN
     Indication: KERATITIS
     Dosage: UNK
     Route: 061

REACTIONS (2)
  - Off label use [Unknown]
  - Gastrointestinal disorder [Unknown]
